FAERS Safety Report 11082215 (Version 1)
Quarter: 2015Q2

REPORT INFORMATION
  Report Type: Spontaneous
  Country: DE (occurrence: DE)
  Receive Date: 20150501
  Receipt Date: 20150501
  Transmission Date: 20150821
  Serious: Yes (Death)
  Sender: FDA-Public Use
  Company Number: DE-TEVA-559430USA

PATIENT
  Age: 66 Year
  Sex: Male

DRUGS (1)
  1. BENDAMUSTINE HYDROCHLORIDE [Suspect]
     Active Substance: BENDAMUSTINE HYDROCHLORIDE
     Indication: PLASMACYTOMA
     Route: 042
     Dates: start: 20150203, end: 20150204

REACTIONS (2)
  - Multi-organ failure [Fatal]
  - Peripheral sensorimotor neuropathy [Fatal]

NARRATIVE: CASE EVENT DATE: 201503
